FAERS Safety Report 18810276 (Version 2)
Quarter: 2021Q1

REPORT INFORMATION
  Report Type: Report from Study
  Country: None (occurrence: CO)
  Receive Date: 20210130
  Receipt Date: 20210219
  Transmission Date: 20210419
  Serious: Yes (Hospitalization, Other)
  Sender: FDA-Public Use
  Company Number: CO-ABBVIE-20K-036-3641147-00

PATIENT
  Age: 75 Year
  Sex: Female
  Weight: 74 kg

DRUGS (2)
  1. ZEMPLAR [Suspect]
     Active Substance: PARICALCITOL
     Indication: HYPERPARATHYROIDISM SECONDARY
     Route: 042
     Dates: start: 20200630, end: 20210126
  2. ZEMPLAR [Suspect]
     Active Substance: PARICALCITOL
     Indication: CHRONIC KIDNEY DISEASE

REACTIONS (13)
  - Inflammation [Recovering/Resolving]
  - Respiratory disorder [Recovering/Resolving]
  - Discoloured vomit [Not Recovered/Not Resolved]
  - Asthenia [Recovering/Resolving]
  - Decreased appetite [Recovering/Resolving]
  - Nausea [Not Recovered/Not Resolved]
  - Cough [Recovering/Resolving]
  - Lung disorder [Recovering/Resolving]
  - Asymptomatic COVID-19 [Recovering/Resolving]
  - Blepharitis [Recovering/Resolving]
  - Fatigue [Recovering/Resolving]
  - Cardiac failure [Unknown]
  - General physical health deterioration [Not Recovered/Not Resolved]

NARRATIVE: CASE EVENT DATE: 202008
